FAERS Safety Report 19667601 (Version 1)
Quarter: 2021Q3

REPORT INFORMATION
  Report Type: Spontaneous
  Country: US (occurrence: US)
  Receive Date: 20210806
  Receipt Date: 20210806
  Transmission Date: 20211014
  Serious: No
  Sender: FDA-Public Use
  Company Number: US-MAYNE PHARMA-2020MYN000434

PATIENT

DRUGS (1)
  1. NYSTATIN. [Suspect]
     Active Substance: NYSTATIN
     Indication: TINEA CRURIS
     Dosage: UNK
     Route: 061
     Dates: start: 202007

REACTIONS (5)
  - Application site vesicles [Unknown]
  - Application site discolouration [Recovering/Resolving]
  - Application site inflammation [Unknown]
  - Application site pain [Unknown]
  - Application site pruritus [Unknown]

NARRATIVE: CASE EVENT DATE: 2020
